FAERS Safety Report 5642804-3 (Version None)
Quarter: 2008Q1

REPORT INFORMATION
  Report Type: 
  Country: None (occurrence: None)
  Receive Date: 20080227
  Receipt Date: 20080227
  Transmission Date: 20080703
  Serious: Yes (Hospitalization)
  Sender: FDA-Public Use
  Company Number: None

PATIENT
  Age: 56 Year
  Sex: Male

DRUGS (1)
  1. LITHIUM CARBONATE [Suspect]
     Indication: SCHIZOAFFECTIVE DISORDER
     Dosage: 2250MG EVERY DAY PO
     Route: 048
     Dates: start: 20060807, end: 20071120

REACTIONS (3)
  - CONFUSIONAL STATE [None]
  - DELIRIUM [None]
  - TREMOR [None]
